FAERS Safety Report 9727639 (Version 2)
Quarter: 2013Q4

REPORT INFORMATION
  Report Type: Report from Study
  Country: CL (occurrence: CL)
  Receive Date: 20131203
  Receipt Date: 20131209
  Transmission Date: 20140711
  Serious: Yes (Other)
  Sender: FDA-Public Use
  Company Number: PHHY2013CL140421

PATIENT
  Age: 77 Year
  Sex: Female

DRUGS (1)
  1. TAREG D [Suspect]
     Dosage: 1 DF (VALS 160MG, HCTZ 12.5MG), UNK
     Route: 048

REACTIONS (5)
  - Hiatus hernia [Not Recovered/Not Resolved]
  - Cardiac disorder [Unknown]
  - Lung disorder [Unknown]
  - Weight decreased [Unknown]
  - Fatigue [Unknown]
